FAERS Safety Report 7470263-7 (Version None)
Quarter: 2011Q2

REPORT INFORMATION
  Report Type: 
  Country: None (occurrence: None)
  Receive Date: 20110510
  Receipt Date: 20110422
  Transmission Date: 20111010
  Serious: Yes (Hospitalization, Other)
  Sender: FDA-Public Use
  Company Number: US-BAYER-201040100NA

PATIENT
  Age: 36 Year
  Sex: Female
  Weight: 58.957 kg

DRUGS (10)
  1. YASMIN [Suspect]
     Indication: ACNE
  2. LEXAPRO [Concomitant]
     Dosage: 10 MG, UNK
  3. YASMIN [Suspect]
     Indication: MENSTRUAL CYCLE MANAGEMENT
     Dosage: UNK UNK, QD
     Route: 048
     Dates: start: 20060801, end: 20061101
  4. YASMIN [Suspect]
     Indication: ORAL CONTRACEPTION
  5. YASMIN [Suspect]
     Indication: PREMENSTRUAL SYNDROME
  6. BENZACLIN [Concomitant]
     Route: 061
  7. FLONASE [Concomitant]
  8. OPTIVAR [Concomitant]
  9. ZOVIRAX [Concomitant]
     Dosage: 5 %, UNK
     Route: 061
  10. COMBO MULTI-VITAMINS [Concomitant]

REACTIONS (3)
  - PULMONARY EMBOLISM [None]
  - DYSPNOEA [None]
  - CHEST PAIN [None]
